FAERS Safety Report 5477749-5 (Version None)
Quarter: 2007Q4

REPORT INFORMATION
  Report Type: 
  Country: None (occurrence: None)
  Receive Date: 20071002
  Receipt Date: 20071002
  Transmission Date: 20080405
  Serious: No
  Sender: FDA-Public Use
  Company Number: None

PATIENT
  Age: 28 Year
  Sex: Female
  Weight: 64.4108 kg

DRUGS (3)
  1. CYMBALTA [Suspect]
     Indication: DEPRESSION
     Dosage: 60 MG TO 30 MG ONCE DAILY PO
     Route: 048
     Dates: start: 20060701, end: 20070914
  2. INSULIN -HUMALOG AND LANTUS- [Concomitant]
  3. LISINOPRIL [Concomitant]

REACTIONS (3)
  - DRUG WITHDRAWAL SYNDROME [None]
  - MENORRHAGIA [None]
  - MENSTRUATION IRREGULAR [None]
